FAERS Safety Report 10363355 (Version 2)
Quarter: 2014Q3

REPORT INFORMATION
  Report Type: Report from Study
  Country: US (occurrence: US)
  Receive Date: 20140805
  Receipt Date: 20140908
  Transmission Date: 20150326
  Serious: Yes (Other)
  Sender: FDA-Public Use
  Company Number: PHEH2014US015228

PATIENT
  Sex: Female

DRUGS (14)
  1. CITALOPRAM [Concomitant]
     Active Substance: CITALOPRAM HYDROBROMIDE
     Dosage: UNK UKN, UNK
  2. SYNTHROID [Concomitant]
     Active Substance: LEVOTHYROXINE SODIUM
     Dosage: UNK UKN, UNK
  3. CALCIUM + VITAMIN D                /01483701/ [Concomitant]
     Active Substance: CALCIUM\VITAMIN D
     Dosage: UNK UKN, UNK
  4. WELLBUTRIN [Concomitant]
     Active Substance: BUPROPION HYDROCHLORIDE
     Dosage: UNK UKN, UNK
  5. BABY ASPIRIN [Concomitant]
     Active Substance: ASPIRIN
     Dosage: 81 MG, UNK
  6. VITAMIN B [Concomitant]
     Active Substance: VITAMIN B
     Dosage: UNK UKN, UNK
  7. LORATADINE. [Suspect]
     Active Substance: LORATADINE
     Dosage: UNK UKN, UNK
  8. LASIX [Suspect]
     Active Substance: FUROSEMIDE
     Dosage: 40 MG, UNK
  9. SIMVASTATIN. [Concomitant]
     Active Substance: SIMVASTATIN
     Dosage: UNK UKN, UNK
  10. EXFORGE [Suspect]
     Active Substance: AMLODIPINE BESYLATE\VALSARTAN
     Dosage: 1 DF, UNK (VALS 320 MG, AMLO 10 MG)
  11. LYSINE [Concomitant]
     Active Substance: LYSINE
     Dosage: UNK UKN, UNK
  12. EXFORGE [Suspect]
     Active Substance: AMLODIPINE BESYLATE\VALSARTAN
     Indication: BLOOD PRESSURE ABNORMAL
     Dosage: 1 DF, UNK (VALS 160 MG, AMLO 5 MG)
  13. LASIX [Suspect]
     Active Substance: FUROSEMIDE
     Dosage: 20 MG, UNK  (HALF)
  14. OMEPRAZOLE. [Concomitant]
     Active Substance: OMEPRAZOLE
     Indication: ABDOMINAL DISCOMFORT
     Dosage: UNK UKN, UNK

REACTIONS (8)
  - Decreased appetite [Unknown]
  - Blood creatinine increased [Unknown]
  - Plasma cell myeloma [Unknown]
  - Renal disorder [Unknown]
  - Weight decreased [Unknown]
  - Blood pressure fluctuation [Unknown]
  - Malaise [Unknown]
  - Nausea [Unknown]
